FAERS Safety Report 15648860 (Version 1)
Quarter: 2018Q4

REPORT INFORMATION
  Report Type: Report from Study
  Country: US (occurrence: US)
  Receive Date: 20181122
  Receipt Date: 20181122
  Transmission Date: 20190205
  Serious: Yes (Other)
  Sender: FDA-Public Use
  Company Number: PHHY2018US029763

PATIENT
  Age: 51 Year
  Sex: Female

DRUGS (1)
  1. GILENYA [Suspect]
     Active Substance: FINGOLIMOD HYDROCHLORIDE
     Indication: MULTIPLE SCLEROSIS
     Dosage: UNK, QD
     Route: 048

REACTIONS (21)
  - Pain in jaw [Unknown]
  - Headache [Unknown]
  - Aspiration [Unknown]
  - Alanine aminotransferase increased [Unknown]
  - Melanocytic naevus [Unknown]
  - Solar lentigo [Unknown]
  - Temperature intolerance [Unknown]
  - Muscle spasticity [Unknown]
  - Seborrhoeic keratosis [Unknown]
  - Urinary retention [Unknown]
  - Gastrooesophageal reflux disease [Unknown]
  - Chills [Unknown]
  - Sebaceous hyperplasia [Unknown]
  - Fatigue [Unknown]
  - Pain in extremity [Unknown]
  - Muscle spasms [Unknown]
  - Ataxia [Unknown]
  - Dyskinesia [Unknown]
  - Blood alkaline phosphatase increased [Unknown]
  - Eye pain [Unknown]
  - Asthenia [Unknown]

NARRATIVE: CASE EVENT DATE: 20171130
